FAERS Safety Report 8375735 (Version 2)
Quarter: 2013Q1

REPORT INFORMATION
  Report Type: Report from Study
  Country: US (occurrence: US)
  Receive Date: 20120129
  Receipt Date: 20130129
  Transmission Date: 20140127
  Serious: No
  Sender: FDA-Public Use
  Company Number: US-ABBOTT-11P-163-0882284-00

PATIENT
  Sex: Female

DRUGS (1)
  1. HUMIRA 40 MG/ 0.8 ML PRE-FILLED SYRINGE [Suspect]
     Indication: RHEUMATOID ARTHRITIS
     Route: 058
     Dates: start: 20110805, end: 20120110

REACTIONS (9)
  - Rash [Recovering/Resolving]
  - Eczema [Not Recovered/Not Resolved]
  - Rash [Unknown]
  - Rash [Unknown]
  - Erythema [Unknown]
  - Headache [Recovering/Resolving]
  - Arthralgia [Unknown]
  - Osteoporosis [Unknown]
  - Exostosis [Unknown]
